FAERS Safety Report 11814070 (Version 1)
Quarter: 2015Q4

REPORT INFORMATION
  Report Type: Spontaneous
  Country: US (occurrence: None)
  Receive Date: 20151208
  Receipt Date: 20151208
  Transmission Date: 20160305
  Serious: No
  Sender: FDA-Public Use
  Company Number: None

PATIENT
  Age: 63 Year
  Sex: Female
  Weight: 64.86 kg

DRUGS (1)
  1. BENZONATATE. [Suspect]
     Active Substance: BENZONATATE
     Indication: COUGH
     Route: 048
     Dates: start: 20151203, end: 20151205

REACTIONS (2)
  - Bronchospasm [None]
  - Chest pain [None]

NARRATIVE: CASE EVENT DATE: 20151205
